FAERS Safety Report 9342179 (Version 1)
Quarter: 2013Q2

REPORT INFORMATION
  Report Type: Spontaneous
  Country: DE (occurrence: ES)
  Receive Date: 20130611
  Receipt Date: 20130611
  Transmission Date: 20140414
  Serious: Yes (Hospitalization)
  Sender: FDA-Public Use
  Company Number: ES-FRI-1000045795

PATIENT
  Age: 71 Year
  Sex: Male
  Weight: 85 kg

DRUGS (5)
  1. ROFLUMILAST [Suspect]
     Indication: CHRONIC OBSTRUCTIVE PULMONARY DISEASE
     Dosage: 1 DF
     Route: 048
     Dates: start: 201211
  2. SERETIDE [Concomitant]
     Indication: CHRONIC OBSTRUCTIVE PULMONARY DISEASE
     Route: 055
  3. SALBUTAMOL [Concomitant]
     Indication: CHRONIC OBSTRUCTIVE PULMONARY DISEASE
     Route: 055
  4. OXYGEN [Concomitant]
     Indication: CHRONIC OBSTRUCTIVE PULMONARY DISEASE
     Route: 055
  5. DIAMICRON [Concomitant]
     Indication: DIABETES MELLITUS
     Route: 048

REACTIONS (6)
  - Face oedema [Recovered/Resolved]
  - Oedema peripheral [Recovered/Resolved]
  - Dyspnoea [Not Recovered/Not Resolved]
  - Somnolence [Not Recovered/Not Resolved]
  - Muscle spasms [Not Recovered/Not Resolved]
  - Weight decreased [Not Recovered/Not Resolved]
